FAERS Safety Report 9647183 (Version 3)
Quarter: 2014Q2

REPORT INFORMATION
  Report Type: Spontaneous
  Country: US (occurrence: US)
  Receive Date: 20131027
  Receipt Date: 20140418
  Transmission Date: 20141212
  Serious: No
  Sender: FDA-Public Use
  Company Number: US-PURDUE-USA-2013-0105164

PATIENT
  Sex: Male
  Weight: 128.35 kg

DRUGS (2)
  1. OXYCONTIN (NDA 22-272) [Suspect]
     Indication: PAIN
     Dosage: 30 MG, Q12H
     Route: 048
     Dates: start: 20130722
  2. KLONOPIN [Concomitant]
     Indication: ANXIETY

REACTIONS (11)
  - Wrong technique in drug usage process [Recovered/Resolved]
  - Irritable bowel syndrome [Recovered/Resolved]
  - Chest pain [Recovered/Resolved]
  - Drug effect decreased [Recovered/Resolved]
  - Diarrhoea [Recovered/Resolved]
  - Abdominal distension [Recovered/Resolved]
  - Abdominal distension [Recovered/Resolved]
  - Abdominal pain [Recovered/Resolved]
  - Product odour abnormal [Recovered/Resolved]
  - Product physical issue [Recovered/Resolved]
  - Drug ineffective [Unknown]
